FAERS Safety Report 7988164-4 (Version None)
Quarter: 2011Q4

REPORT INFORMATION
  Report Type: 
  Country: None (occurrence: None)
  Receive Date: 20111216
  Receipt Date: 20101208
  Transmission Date: 20120403
  Serious: Yes (Other)
  Sender: FDA-Public Use
  Company Number: US-BRISTOL-MYERS SQUIBB COMPANY-15431125

PATIENT
  Age: 23 Year
  Sex: Male
  Weight: 73 kg

DRUGS (4)
  1. ABILIFY [Suspect]
     Dates: start: 20100201
  2. XOPENEX [Concomitant]
  3. ATIVAN [Concomitant]
  4. ZOLOFT [Concomitant]

REACTIONS (15)
  - FATIGUE [None]
  - DISTURBANCE IN ATTENTION [None]
  - CHEST DISCOMFORT [None]
  - ANXIETY [None]
  - COGNITIVE DISORDER [None]
  - CATATONIA [None]
  - PRURITUS [None]
  - SKIN ODOUR ABNORMAL [None]
  - RESTLESSNESS [None]
  - SOCIAL AVOIDANT BEHAVIOUR [None]
  - NAUSEA [None]
  - VOMITING [None]
  - RETCHING [None]
  - VISION BLURRED [None]
  - EYELID FUNCTION DISORDER [None]
